FAERS Safety Report 8815416 (Version 1)
Quarter: 2012Q4

REPORT INFORMATION
  Report Type: 
  Country: US (occurrence: US)
  Receive Date: 20120928
  Receipt Date: 20120928
  Transmission Date: 20130627
  Serious: Yes (Hospitalization)
  Sender: FDA-Public Use
  Company Number: US-B.I. PHARMACEUTICALS,INC./RIDGEFIELD-2012-BP-23211BP

PATIENT
  Age: 76 Year
  Sex: Male

DRUGS (12)
  1. FLOMAX CAPSULES [Suspect]
     Indication: BENIGN PROSTATIC HYPERPLASIA
     Route: 048
     Dates: start: 20120217
  2. COREG [Suspect]
     Indication: CARDIAC DISORDER
     Route: 048
     Dates: start: 2005
  3. APIXABAN [Suspect]
     Indication: EMBOLISM
     Route: 048
     Dates: start: 20110519
  4. FUROSEMIDE [Concomitant]
     Dates: start: 2005
  5. OMEPRAZOLE [Concomitant]
     Dates: start: 2001
  6. QUINAPRIL [Concomitant]
     Dates: start: 2005
  7. BACLOFEN [Concomitant]
     Dates: start: 20111021
  8. ROSUVASTATIN [Concomitant]
     Dates: start: 20120320
  9. GABAPENTIN [Concomitant]
     Dates: start: 20120322
  10. AUGMENTIN [Concomitant]
     Dates: start: 20120320
  11. MAGNESIUM HYDROXIDE [Concomitant]
     Dates: start: 20120320
  12. ASPIRIN [Concomitant]
     Dates: start: 20120322

REACTIONS (2)
  - Presyncope [Unknown]
  - Bradycardia [Unknown]
